FAERS Safety Report 9378921 (Version 1)
Quarter: 2013Q3

REPORT INFORMATION
  Report Type: Spontaneous
  Country: US (occurrence: US)
  Receive Date: 20130702
  Receipt Date: 20130702
  Transmission Date: 20140515
  Serious: No
  Sender: FDA-Public Use
  Company Number: US-PFIZER INC-2013192980

PATIENT
  Age: 74 Year
  Sex: Male
  Weight: 77.1 kg

DRUGS (4)
  1. VIAGRA [Suspect]
     Indication: ERECTILE DYSFUNCTION
     Dosage: 50 MG, UNK
     Route: 048
     Dates: start: 201306, end: 201306
  2. VIAGRA [Suspect]
     Dosage: 100 MG, UNK
     Dates: start: 201306
  3. LISINOPRIL [Concomitant]
     Dosage: 10 MG, DAILY IN MORNING
  4. SIMVASTATIN [Concomitant]
     Dosage: 20 MG, DAILY IN EVENING

REACTIONS (2)
  - Drug ineffective [Unknown]
  - Drug effect incomplete [Unknown]
